FAERS Safety Report 11020287 (Version 1)
Quarter: 2015Q2

REPORT INFORMATION
  Report Type: Spontaneous
  Country: CA (occurrence: CA)
  Receive Date: 20150413
  Receipt Date: 20150413
  Transmission Date: 20150821
  Serious: Yes (Other)
  Sender: FDA-Public Use
  Company Number: CA-ROCHE-1562214

PATIENT
  Age: 54 Year
  Sex: Female

DRUGS (17)
  1. HERCEPTIN [Suspect]
     Active Substance: TRASTUZUMAB
     Indication: BREAST CANCER
     Route: 042
  2. PERJETA [Suspect]
     Active Substance: PERTUZUMAB
     Route: 042
  3. ZOFRAN [Concomitant]
     Active Substance: ONDANSETRON HYDROCHLORIDE
  4. CEFTRIAXONE. [Concomitant]
     Active Substance: CEFTRIAXONE
     Route: 030
  5. FLUTICASONE [Concomitant]
     Active Substance: FLUTICASONE\FLUTICASONE PROPIONATE
  6. STEMETIL [Concomitant]
     Active Substance: PROCHLORPERAZINE MALEATE
  7. PERJETA [Suspect]
     Active Substance: PERTUZUMAB
     Indication: BREAST CANCER
     Route: 042
  8. COVERSYL PLUS [Suspect]
     Active Substance: INDAPAMIDE\PERINDOPRIL
     Indication: PRODUCT USED FOR UNKNOWN INDICATION
     Dosage: THERAPY DURATION: 41 DAYS
     Route: 048
  9. HYCODAN (CANADA) [Concomitant]
  10. SENNA [Concomitant]
     Active Substance: SENNA LEAF\SENNOSIDES\SENNOSIDES A AND B
  11. PACLITAXEL. [Suspect]
     Active Substance: PACLITAXEL
     Indication: BREAST CANCER
     Route: 042
  12. CELEXA [Concomitant]
     Active Substance: CITALOPRAM HYDROBROMIDE
     Route: 065
  13. CIPROFLOXACIN. [Concomitant]
     Active Substance: CIPROFLOXACIN
  14. LORAZEPAM. [Concomitant]
     Active Substance: LORAZEPAM
  15. LACTULOSE. [Concomitant]
     Active Substance: LACTULOSE
     Route: 065
  16. HERCEPTIN [Suspect]
     Active Substance: TRASTUZUMAB
     Route: 042
  17. SALBUTAMOL [Concomitant]
     Active Substance: ALBUTEROL

REACTIONS (1)
  - Hyponatraemia [Recovered/Resolved]
